FAERS Safety Report 20553547 (Version 2)
Quarter: 2022Q1

REPORT INFORMATION
  Report Type: Spontaneous
  Country: US (occurrence: US)
  Receive Date: 20220304
  Receipt Date: 20220325
  Transmission Date: 20220424
  Serious: No
  Sender: FDA-Public Use
  Company Number: US-ELI_LILLY_AND_COMPANY-US202202002424

PATIENT
  Sex: Female

DRUGS (4)
  1. TALTZ [Suspect]
     Active Substance: IXEKIZUMAB
     Indication: Psoriasis
     Dosage: UNK UNK, MONTHLY (1/M)
     Route: 065
  2. TALTZ [Suspect]
     Active Substance: IXEKIZUMAB
     Indication: Psoriatic arthropathy
  3. TAMIFLU [Suspect]
     Active Substance: OSELTAMIVIR PHOSPHATE
     Indication: Antiviral prophylaxis
     Dosage: UNK UNK, UNKNOWN
     Route: 065
  4. INFLUENZA VIRUS VACCINE QUADRIVALENT TYPE A+B [Suspect]
     Active Substance: INFLUENZA VIRUS VACCINE QUADRIVALENT TYPE A+B
     Indication: Influenza immunisation
     Dosage: UNK UNK, UNKNOWN
     Route: 065

REACTIONS (7)
  - Illness [Recovered/Resolved]
  - Pain [Recovered/Resolved]
  - Headache [Recovered/Resolved]
  - Bacterial infection [Recovered/Resolved]
  - Psoriatic arthropathy [Unknown]
  - Psoriasis [Unknown]
  - Therapeutic product effect decreased [Unknown]
